FAERS Safety Report 21477778 (Version 1)
Quarter: 2022Q4

REPORT INFORMATION
  Report Type: Report from Study
  Country: FR (occurrence: None)
  Receive Date: 20221019
  Receipt Date: 20221019
  Transmission Date: 20230113
  Serious: Yes (Death)
  Sender: FDA-Public Use
  Company Number: 2022A348024

PATIENT
  Age: 1004 Month
  Sex: Female
  Weight: 59 kg

DRUGS (3)
  1. EVUSHELD [Suspect]
     Active Substance: CILGAVIMAB\TIXAGEVIMAB
     Indication: COVID-19 prophylaxis
     Dosage: 300 MG (TIXAGEVIMAB 150 MG/CILGAVIMAB 150 MG), FIRST COMPLETE ADMINISTRATION ONCE/SINGLE ADMINIST...
     Route: 030
     Dates: start: 20220125, end: 20220125
  2. LENALIDOMIDE [Concomitant]
     Active Substance: LENALIDOMIDE
  3. RITUXIMAB [Concomitant]
     Active Substance: RITUXIMAB

REACTIONS (1)
  - Lymphoma [Fatal]

NARRATIVE: CASE EVENT DATE: 20220826
